FAERS Safety Report 5699659-0 (Version None)
Quarter: 2008Q2

REPORT INFORMATION
  Report Type: 
  Country: None (occurrence: None)
  Receive Date: 20080410
  Receipt Date: 20080331
  Transmission Date: 20081010
  Serious: Yes (Death, Other)
  Sender: FDA-Public Use
  Company Number: PHHY2008BE04213

PATIENT
  Age: 75 Year
  Sex: Female
  Weight: 87 kg

DRUGS (2)
  1. ZOMETA [Suspect]
     Indication: METASTASES TO BONE
     Dosage: 1 MG, UNK
     Route: 042
     Dates: start: 20020906, end: 20070803
  2. ANTIBIOTICS [Concomitant]

REACTIONS (3)
  - DEATH [None]
  - OSTEONECROSIS [None]
  - PAIN IN JAW [None]
